FAERS Safety Report 18781947 (Version 1)
Quarter: 2021Q1

REPORT INFORMATION
  Report Type: Spontaneous
  Country: US (occurrence: US)
  Receive Date: 20210125
  Receipt Date: 20210125
  Transmission Date: 20210419
  Serious: No
  Sender: FDA-Public Use
  Company Number: None

PATIENT
  Age: 80 Year
  Sex: Male
  Weight: 76.5 kg

DRUGS (3)
  1. ABIRATERONE. [Suspect]
     Active Substance: ABIRATERONE ACETATE
     Indication: PROSTATE CANCER
     Route: 048
     Dates: start: 20200901
  2. PREDNISONE. [Concomitant]
     Active Substance: PREDNISONE
  3. PROSTEON [Concomitant]
     Active Substance: MINERALS

REACTIONS (1)
  - Fatigue [None]

NARRATIVE: CASE EVENT DATE: 20210125
